FAERS Safety Report 13367961 (Version 1)
Quarter: 2017Q1

REPORT INFORMATION
  Report Type: Spontaneous
  Country: NO (occurrence: NO)
  Receive Date: 20170324
  Receipt Date: 20170324
  Transmission Date: 20170429
  Serious: Yes (Hospitalization)
  Sender: FDA-Public Use
  Company Number: NO-ELI_LILLY_AND_COMPANY-NO201703005716

PATIENT
  Age: 41 Year
  Sex: Male

DRUGS (1)
  1. ZYPADHERA [Suspect]
     Active Substance: OLANZAPINE PAMOATE
     Indication: PSYCHOTIC DISORDER
     Dosage: 405 MG, 2/M
     Route: 030
     Dates: start: 2015

REACTIONS (6)
  - Balance disorder [Recovering/Resolving]
  - Fatigue [Recovering/Resolving]
  - Loss of consciousness [Recovered/Resolved]
  - Confusional state [Recovering/Resolving]
  - Gait disturbance [Unknown]
  - Listless [Recovering/Resolving]

NARRATIVE: CASE EVENT DATE: 20170228
